FAERS Safety Report 8292520-7 (Version None)
Quarter: 2012Q2

REPORT INFORMATION
  Report Type: 
  Country: None (occurrence: None)
  Receive Date: 20120417
  Receipt Date: 20111020
  Transmission Date: 20120825
  Serious: No
  Sender: FDA-Public Use
  Company Number: US-ASTRAZENECA-2009UW05829

PATIENT
  Age: 47 Year
  Sex: Female
  Weight: 124.7 kg

DRUGS (12)
  1. OMEPRAZOLE [Suspect]
     Indication: GASTROOESOPHAGEAL REFLUX DISEASE
     Dosage: UNKNOWN
     Route: 048
     Dates: start: 20080301
  2. NEOCON [Concomitant]
     Indication: ORAL CONTRACEPTION
  3. IRON [Concomitant]
  4. HYDROCHLOROTHIAZIDE [Concomitant]
  5. LORAZEPAM [Concomitant]
  6. VICODIN [Concomitant]
     Indication: PAIN
  7. MULTI-VITAMIN [Concomitant]
  8. LISINOPRIL [Concomitant]
  9. SEROQUEL [Suspect]
     Dosage: UNKNOWN
     Route: 048
  10. LORATADINE [Concomitant]
     Indication: HYPERSENSITIVITY
  11. NEXIUM [Suspect]
     Indication: GASTROOESOPHAGEAL REFLUX DISEASE
     Route: 048
     Dates: start: 20040101
  12. NAPROXEN [Concomitant]
     Indication: PAIN

REACTIONS (8)
  - GASTROOESOPHAGEAL REFLUX DISEASE [None]
  - ILL-DEFINED DISORDER [None]
  - OESOPHAGEAL PAIN [None]
  - DYSPHONIA [None]
  - ACCIDENT AT WORK [None]
  - JOINT DISLOCATION [None]
  - INAPPROPRIATE SCHEDULE OF DRUG ADMINISTRATION [None]
  - DRUG EFFECT DECREASED [None]
